FAERS Safety Report 7678051-3 (Version None)
Quarter: 2011Q3

REPORT INFORMATION
  Report Type: 
  Country: None (occurrence: None)
  Receive Date: 20110811
  Receipt Date: 20110804
  Transmission Date: 20111222
  Serious: Yes (Hospitalization, Other)
  Sender: FDA-Public Use
  Company Number: US-ACTELION-A-NJ2011-50652

PATIENT

DRUGS (1)
  1. TRACLEER [Suspect]
     Indication: PULMONARY ARTERIAL HYPERTENSION
     Dosage: 125 MG, BID
     Route: 048
     Dates: start: 20030509

REACTIONS (8)
  - PULMONARY OEDEMA [None]
  - PLATELET COUNT DECREASED [None]
  - ATELECTASIS [None]
  - ANAEMIA [None]
  - WHITE BLOOD CELL COUNT DECREASED [None]
  - RIGHT VENTRICULAR FAILURE [None]
  - PACKED RED BLOOD CELL TRANSFUSION [None]
  - PULMONARY HYPERTENSION [None]
